FAERS Safety Report 8000371-3 (Version None)
Quarter: 2011Q4

REPORT INFORMATION
  Report Type: 
  Country: None (occurrence: None)
  Receive Date: 20111211
  Receipt Date: 20111205
  Transmission Date: 20120403
  Serious: Yes (Other)
  Sender: FDA-Public Use
  Company Number: GB-DENTSPLY PROFESSIONAL-2011SCDP004912

PATIENT
  Age: 56 Year
  Sex: Male

DRUGS (1)
  1. PRILOCAINE HYDROCHLORIDE [Suspect]
     Indication: ANAESTHESIA
     Route: 065

REACTIONS (2)
  - MALAISE [None]
  - ASTHENIA [None]
